FAERS Safety Report 6867778-9 (Version None)
Quarter: 2010Q3

REPORT INFORMATION
  Report Type: 
  Country: None (occurrence: None)
  Receive Date: 20100722
  Receipt Date: 20100714
  Transmission Date: 20110219
  Serious: Yes (Hospitalization, Other)
  Sender: FDA-Public Use
  Company Number: JP-ELI_LILLY_AND_COMPANY-JP201006000419

PATIENT
  Age: 65 Year
  Sex: Male
  Weight: 56 kg

DRUGS (8)
  1. ALIMTA [Suspect]
     Indication: LUNG ADENOCARCINOMA RECURRENT
     Dosage: UNK, OTHER
     Route: 042
     Dates: start: 20100520, end: 20100520
  2. PANVITAN [Concomitant]
     Dosage: 1 G, DAILY (1/D)
     Route: 048
  3. OMEPRAL [Concomitant]
     Dosage: 20 MG, DAILY (1/D)
     Route: 048
  4. MUCOSTA [Concomitant]
     Dosage: 100 MG, 3/D
     Route: 048
  5. CALONAL [Concomitant]
     Dosage: 400 MG, 4/D
     Route: 048
  6. MAGMITT [Concomitant]
     Dosage: 330 MG, 3/D
     Route: 048
  7. OXYCONTIN [Concomitant]
     Dosage: 15 MG, 2/D
     Route: 048
  8. HYDROXOCOBALAMIN ACETATE [Concomitant]
     Dosage: 1 MG, UNK
     Dates: start: 20100430, end: 20100430

REACTIONS (3)
  - HYPONATRAEMIA [None]
  - PYREXIA [None]
  - TUBERCULOUS PLEURISY [None]
